FAERS Safety Report 16565478 (Version 1)
Quarter: 2019Q3

REPORT INFORMATION
  Report Type: Spontaneous
  Country: US (occurrence: US)
  Receive Date: 20190711
  Receipt Date: 20190711
  Transmission Date: 20191004
  Serious: Yes (Other)
  Sender: FDA-Public Use
  Company Number: None

PATIENT
  Age: 32 Year
  Sex: Female
  Weight: 149.69 kg

DRUGS (1)
  1. MIRENA [Suspect]
     Active Substance: LEVONORGESTREL
     Dates: start: 20190618, end: 20190708

REACTIONS (4)
  - Depression [None]
  - Crying [None]
  - Complication associated with device [None]
  - Somnolence [None]

NARRATIVE: CASE EVENT DATE: 20190705
